FAERS Safety Report 24969485 (Version 3)
Quarter: 2025Q1

REPORT INFORMATION
  Report Type: Spontaneous
  Country: US (occurrence: US)
  Receive Date: 20250214
  Receipt Date: 20250313
  Transmission Date: 20250408
  Serious: No
  Sender: TOLMAR
  Company Number: US-TOLMAR-25US056138

PATIENT
  Age: 82 Year
  Sex: Male

DRUGS (2)
  1. ELIGARD [Suspect]
     Active Substance: LEUPROLIDE ACETATE
     Indication: Prostate cancer
     Route: 058
     Dates: start: 20250122
  2. ELIGARD [Suspect]
     Active Substance: LEUPROLIDE ACETATE
     Route: 058
     Dates: start: 2011

REACTIONS (4)
  - Wrong technique in product usage process [Unknown]
  - Intercepted product preparation error [Unknown]
  - Syringe issue [Unknown]
  - Product solubility abnormal [Unknown]

NARRATIVE: CASE EVENT DATE: 20250122
